FAERS Safety Report 15114235 (Version 1)
Quarter: 2018Q3

REPORT INFORMATION
  Report Type: Spontaneous
  Country: TR (occurrence: TR)
  Receive Date: 20180706
  Receipt Date: 20180706
  Transmission Date: 20181010
  Serious: Yes (Other)
  Sender: FDA-Public Use
  Company Number: PHHY2018TR034352

PATIENT
  Sex: Female

DRUGS (1)
  1. CLOBETASOL PROPIONATE. [Suspect]
     Active Substance: CLOBETASOL PROPIONATE
     Indication: DERMATITIS DIAPER
     Dosage: 0.05 %, TID (15 G/TUBE)
     Route: 061

REACTIONS (5)
  - Central obesity [Unknown]
  - Erythema [Unknown]
  - Cushingoid [Unknown]
  - Cushing^s syndrome [Unknown]
  - Hypertrichosis [Unknown]
